FAERS Safety Report 24877445 (Version 2)
Quarter: 2025Q1

REPORT INFORMATION
  Report Type: Spontaneous
  Country: SA (occurrence: SA)
  Receive Date: 20250123
  Receipt Date: 20250130
  Transmission Date: 20250409
  Serious: Yes (Hospitalization, Other)
  Sender: MANKIND PHARMA
  Company Number: SA-MankindUS-000315

PATIENT
  Age: 60 Year
  Sex: Female

DRUGS (1)
  1. BACLOFEN [Suspect]
     Active Substance: BACLOFEN
     Indication: Back pain

REACTIONS (1)
  - Toxic encephalopathy [Recovered/Resolved]
